FAERS Safety Report 8327804-7 (Version None)
Quarter: 2012Q2

REPORT INFORMATION
  Report Type: 
  Country: None (occurrence: None)
  Receive Date: 20120502
  Receipt Date: 20120501
  Transmission Date: 20120825
  Serious: No
  Sender: FDA-Public Use
  Company Number: US-PFIZER INC-2012091405

PATIENT
  Sex: Female
  Weight: 86 kg

DRUGS (2)
  1. PROTONIX [Suspect]
     Indication: ULCER HAEMORRHAGE
     Dosage: ONCE A DAY
     Route: 048
     Dates: start: 20090101
  2. NEURONTIN [Suspect]
     Indication: NEUROPATHY PERIPHERAL
     Dosage: 300 MG, THREE TIMES A DAY
     Route: 048
     Dates: end: 20120201

REACTIONS (1)
  - DRUG INEFFECTIVE [None]
